FAERS Safety Report 9153513 (Version 1)
Quarter: 2013Q1

REPORT INFORMATION
  Report Type: Spontaneous
  Country: US (occurrence: None)
  Receive Date: 20130306
  Receipt Date: 20130306
  Transmission Date: 20140127
  Serious: Yes (Hospitalization)
  Sender: FDA-Public Use
  Company Number: None

PATIENT
  Age: 65 Year
  Sex: Female

DRUGS (3)
  1. RIBAVIRIN [Suspect]
     Dosage: 1000 MG DAILY PO
     Route: 048
     Dates: start: 20121112, end: 20130220
  2. PEGASYS [Suspect]
     Dosage: 180 MCG QW SQ
     Route: 058
     Dates: start: 20121112, end: 20130220
  3. INCIVEK [Concomitant]

REACTIONS (4)
  - Asthenia [None]
  - Dizziness [None]
  - Cough [None]
  - Speech disorder [None]
